FAERS Safety Report 5834593-4 (Version None)
Quarter: 2008Q3

REPORT INFORMATION
  Report Type: 
  Country: None (occurrence: None)
  Receive Date: 20080805
  Receipt Date: 20080724
  Transmission Date: 20090109
  Serious: Yes (Hospitalization)
  Sender: FDA-Public Use
  Company Number: US-PFIZER INC-2008063425

PATIENT
  Sex: Female
  Weight: 65.8 kg

DRUGS (11)
  1. CHANTIX [Suspect]
     Indication: SMOKING CESSATION THERAPY
     Route: 048
  2. IPRATROPIUM BROMIDE [Concomitant]
     Indication: RESPIRATORY DISORDER
  3. XOPENEX [Concomitant]
     Indication: RESPIRATORY DISORDER
  4. PLAVIX [Concomitant]
  5. ACETYLSALICYLIC ACID SRT [Concomitant]
  6. VITAMIN TAB [Concomitant]
  7. CENTRUM SILVER [Concomitant]
  8. ZITHROMAX [Concomitant]
  9. LEXAPRO [Concomitant]
  10. METOPROLOL SUCCINATE [Concomitant]
  11. NITROGLYCERIN [Concomitant]

REACTIONS (5)
  - DEHYDRATION [None]
  - MALAISE [None]
  - MYOCARDIAL INFARCTION [None]
  - TRANSIENT ISCHAEMIC ATTACK [None]
  - VIRAL INFECTION [None]
